FAERS Safety Report 7368714-1 (Version None)
Quarter: 2011Q1

REPORT INFORMATION
  Report Type: 
  Country: None (occurrence: None)
  Receive Date: 20110323
  Receipt Date: 20100628
  Transmission Date: 20110831
  Serious: Yes (Other)
  Sender: FDA-Public Use
  Company Number: US-BAYER-201026310NA

PATIENT
  Sex: Male
  Weight: 66 kg

DRUGS (16)
  1. COZAAR [Concomitant]
     Dosage: 100 MG, UNK
     Route: 048
  2. FENOLDOPAM [Concomitant]
     Dosage: 0.5
     Route: 042
     Dates: start: 20050804
  3. DOPAMINE [Concomitant]
     Dosage: 3
     Route: 042
     Dates: start: 20050804
  4. NORVASC [Concomitant]
     Dosage: 15 MG, UNK
     Route: 048
  5. PRIMACOR [Concomitant]
     Dosage: UNK
     Route: 042
     Dates: start: 20050804
  6. NITROGLYCERIN [Concomitant]
     Dosage: UNK
     Route: 042
     Dates: start: 20050804
  7. INSULIN [Concomitant]
     Dosage: UNK
     Route: 042
     Dates: start: 20050804
  8. SOLU-MEDROL [Concomitant]
     Dosage: 1 G, UNK
     Route: 042
     Dates: start: 20050804
  9. COUMADIN [Concomitant]
     Dosage: ADJUSTABLE DOSE
     Route: 048
  10. NEO-SYNEPHRINOL [Concomitant]
     Dosage: UNK
     Route: 042
     Dates: start: 20050804
  11. TRASYLOL [Suspect]
     Dosage: LOADING DOSE:200ML, THEN 50CC/HR
     Dates: start: 20050804, end: 20050804
  12. TRASYLOL [Suspect]
     Indication: AORTIC VALVE REPLACEMENT
     Dosage: INITIAL (TEST) DOSE : 1ML
     Route: 042
     Dates: start: 20050804, end: 20050804
  13. RED BLOOD CELLS [Concomitant]
     Dosage: 750 ML, UNK
     Dates: start: 20050804
  14. LASIX [Concomitant]
     Dosage: 40 MG, UNK
     Route: 048
  15. LEVOPHED [Concomitant]
     Dosage: UNK
     Route: 042
     Dates: start: 20050804
  16. HEPARIN [Concomitant]
     Dosage: UNK
     Route: 042
     Dates: start: 20050804

REACTIONS (9)
  - PAIN [None]
  - RENAL INJURY [None]
  - RENAL FAILURE [None]
  - RENAL IMPAIRMENT [None]
  - EMOTIONAL DISORDER [None]
  - STRESS [None]
  - ANXIETY [None]
  - EMOTIONAL DISTRESS [None]
  - FEAR [None]
